FAERS Safety Report 10112239 (Version 1)
Quarter: 2014Q2

REPORT INFORMATION
  Report Type: Spontaneous
  Country: GB (occurrence: GB)
  Receive Date: 20140425
  Receipt Date: 20140425
  Transmission Date: 20141212
  Serious: Yes (Death, Other)
  Sender: FDA-Public Use
  Company Number: PHHY2014GB048882

PATIENT
  Age: 36 Year
  Sex: Female

DRUGS (6)
  1. CISPLATIN [Suspect]
     Indication: CHONDROSARCOMA
  2. CISPLATIN [Suspect]
     Indication: CHEMOTHERAPY
  3. DOXORUBICIN [Suspect]
     Indication: CHONDROSARCOMA
  4. DOXORUBICIN [Suspect]
     Indication: CHEMOTHERAPY
  5. METHOTREXATE [Concomitant]
     Indication: CHONDROSARCOMA
  6. METHOTREXATE [Concomitant]
     Indication: CHEMOTHERAPY

REACTIONS (2)
  - Death [Fatal]
  - Chondrosarcoma metastatic [Unknown]
